FAERS Safety Report 5778315-4 (Version None)
Quarter: 2008Q2

REPORT INFORMATION
  Report Type: 
  Country: None (occurrence: None)
  Receive Date: 20080619
  Receipt Date: 20080611
  Transmission Date: 20081010
  Serious: Yes (Hospitalization)
  Sender: FDA-Public Use
  Company Number: GB-ROCHE-570198

PATIENT
  Sex: Female
  Weight: 102 kg

DRUGS (3)
  1. ORLISTAT [Suspect]
     Indication: OBESITY
     Route: 048
     Dates: start: 20071005
  2. ENALAPRIL MALEATE [Concomitant]
     Indication: HYPERTENSION
     Route: 048
  3. CLOMIPRAMINE HCL [Concomitant]
     Indication: DEPRESSION
     Route: 048

REACTIONS (2)
  - FALL [None]
  - FEMUR FRACTURE [None]
